FAERS Safety Report 10216386 (Version 4)
Quarter: 2014Q3

REPORT INFORMATION
  Report Type: Report from Study
  Country: US (occurrence: US)
  Receive Date: 20140604
  Receipt Date: 20140820
  Transmission Date: 20150326
  Serious: Yes (Hospitalization, Other)
  Sender: FDA-Public Use
  Company Number: PHEH2014US011065

PATIENT
  Sex: Male

DRUGS (4)
  1. KEFLEX [Suspect]
     Active Substance: CEPHALEXIN
     Dosage: UNK UKN, UNK
  2. CLOZAPINE. [Suspect]
     Active Substance: CLOZAPINE
     Dosage: UKN
     Dates: start: 201405
  3. CLOZARIL [Suspect]
     Active Substance: CLOZAPINE
     Dosage: 37.5 MG, BID
     Dates: start: 201405
  4. CLOZARIL [Suspect]
     Active Substance: CLOZAPINE
     Dosage: 50 MG, BID

REACTIONS (6)
  - Mental status changes [Unknown]
  - Confusional state [Unknown]
  - Infection [Unknown]
  - Hallucination [Unknown]
  - Dementia Alzheimer^s type [Unknown]
  - Charles Bonnet syndrome [Unknown]
